FAERS Safety Report 5978005-9 (Version None)
Quarter: 2008Q4

REPORT INFORMATION
  Report Type: 
  Country: None (occurrence: None)
  Receive Date: 20081126
  Receipt Date: 20081112
  Transmission Date: 20090506
  Serious: Yes (Hospitalization)
  Sender: FDA-Public Use
  Company Number: KV200800244

PATIENT
  Age: 87 Year
  Weight: 61.2 kg

DRUGS (6)
  1. ISOSORBIDE MONONITRATE [Suspect]
     Indication: ANGINA PECTORIS
     Dosage: 30 MG, QD, ORAL
     Route: 048
  2. CAPTOPRIL [Concomitant]
  3. WARFARIN SODIUM [Concomitant]
  4. LIPITOR [Concomitant]
  5. FUROSEMIDE [Concomitant]
  6. SPIRONOLACTONE [Concomitant]

REACTIONS (3)
  - BLOOD PRESSURE DECREASED [None]
  - PRODUCT QUALITY ISSUE [None]
  - SYNCOPE [None]
